FAERS Safety Report 5115762-8 (Version None)
Quarter: 2006Q3

REPORT INFORMATION
  Report Type: 
  Country: None (occurrence: None)
  Receive Date: 20060927
  Receipt Date: 20060626
  Transmission Date: 20061208
  Serious: Yes (Death, Life-Threatening, Hospitalization, Disabling, Other)
  Sender: FDA-Public Use
  Company Number: 2006AP02933

PATIENT
  Age: 17691 Day
  Sex: Female

DRUGS (7)
  1. IRESSA [Suspect]
     Indication: LIP AND/OR ORAL CAVITY CANCER RECURRENT
     Route: 048
     Dates: start: 20050825
  2. MULTIVITAMIN [Concomitant]
     Indication: MEDICAL DIET
     Route: 048
     Dates: start: 20050821
  3. CLOGEN [Concomitant]
     Indication: INFECTION PROPHYLAXIS
     Route: 048
     Dates: start: 20050822
  4. POTASSIUM CHLORIDE [Concomitant]
     Indication: HYPOKALAEMIA
     Route: 048
     Dates: start: 20050823
  5. CLOTRIMAZOLE [Concomitant]
     Indication: INFECTION PROPHYLAXIS
     Route: 048
     Dates: start: 20060318
  6. TEGRETOL [Concomitant]
     Indication: PAIN IN JAW
     Route: 048
     Dates: start: 20060320
  7. ELTROXIN [Concomitant]
     Indication: HYPOTHYROIDISM
     Route: 048
     Dates: start: 20060318

REACTIONS (3)
  - DYSPHAGIA [None]
  - GRAND MAL CONVULSION [None]
  - HAEMORRHAGE INTRACRANIAL [None]
